FAERS Safety Report 6931384-8 (Version None)
Quarter: 2010Q3

REPORT INFORMATION
  Report Type: 
  Country: None (occurrence: None)
  Receive Date: 20100819
  Receipt Date: 20100811
  Transmission Date: 20110219
  Serious: Yes (Other)
  Sender: FDA-Public Use
  Company Number: JP-JNJFOC-20100801690

PATIENT
  Age: 37 Year
  Sex: Male

DRUGS (1)
  1. RISPERDAL [Suspect]
     Indication: SCHIZOPHRENIA
     Route: 048

REACTIONS (8)
  - ABNORMAL BEHAVIOUR [None]
  - EJACULATION DISORDER [None]
  - ERECTILE DYSFUNCTION [None]
  - INSOMNIA [None]
  - LIBIDO DECREASED [None]
  - SPEECH DISORDER [None]
  - THIRST [None]
  - WEIGHT INCREASED [None]
